FAERS Safety Report 22102902 (Version 3)
Quarter: 2023Q2

REPORT INFORMATION
  Report Type: Spontaneous
  Country: ES (occurrence: ES)
  Receive Date: 20230316
  Receipt Date: 20230421
  Transmission Date: 20230721
  Serious: Yes (Other)
  Sender: FDA-Public Use
  Company Number: ES-PFIZER INC-202300106784

PATIENT
  Age: 77 Year
  Weight: 65 kg

DRUGS (4)
  1. IBRANCE [Suspect]
     Active Substance: PALBOCICLIB
     Indication: Breast cancer
     Dosage: DAILY FOR 21 DAYS
     Route: 048
     Dates: start: 20221207, end: 20221226
  2. IBRANCE [Suspect]
     Active Substance: PALBOCICLIB
     Dosage: 75MG, DAILY FOR 21 DAYS
     Dates: start: 20230315, end: 20230329
  3. FULVESTRANT [Concomitant]
     Active Substance: FULVESTRANT
     Indication: Breast cancer
     Dosage: FOR 14 DAYS FOR 3 CYCLES, AND THEN EVERY 28 DAYS
     Dates: start: 20221207
  4. FULVESTRANT [Concomitant]
     Active Substance: FULVESTRANT
     Dosage: UNK
     Dates: start: 20230203

REACTIONS (1)
  - Pancytopenia [Recovered/Resolved]

NARRATIVE: CASE EVENT DATE: 20221227
